FAERS Safety Report 7783554-7 (Version None)
Quarter: 2011Q3

REPORT INFORMATION
  Report Type: 
  Country: None (occurrence: None)
  Receive Date: 20110928
  Receipt Date: 20110613
  Transmission Date: 20111222
  Serious: No
  Sender: FDA-Public Use
  Company Number: US-MYLANLABS-2011S1012308

PATIENT
  Age: 69 Year
  Sex: Female
  Weight: 77.11 kg

DRUGS (2)
  1. FEMARA [Suspect]
     Indication: BREAST CANCER
     Route: 048
     Dates: start: 20110501, end: 20110607
  2. LETROZOLE [Suspect]
     Indication: BREAST CANCER
     Route: 048
     Dates: start: 20110607

REACTIONS (4)
  - THROAT TIGHTNESS [None]
  - FATIGUE [None]
  - HOT FLUSH [None]
  - MYALGIA [None]
